FAERS Safety Report 21007965 (Version 1)
Quarter: 2022Q2

REPORT INFORMATION
  Report Type: Spontaneous
  Country: JP (occurrence: JP)
  Receive Date: 20220627
  Receipt Date: 20220627
  Transmission Date: 20220721
  Serious: Yes (Death)
  Sender: FDA-Public Use
  Company Number: JP-JNJFOC-20220649579

PATIENT
  Age: 7 Decade

DRUGS (1)
  1. UPTRAVI [Suspect]
     Active Substance: SELEXIPAG
     Indication: Pulmonary arterial hypertension
     Route: 048
     Dates: start: 20220303, end: 2022

REACTIONS (2)
  - Pulmonary arterial hypertension [Fatal]
  - Cardiac failure [Fatal]

NARRATIVE: CASE EVENT DATE: 20220101
